FAERS Safety Report 7142044-5 (Version None)
Quarter: 2010Q4

REPORT INFORMATION
  Report Type: 
  Country: None (occurrence: None)
  Receive Date: 20101207
  Receipt Date: 20101202
  Transmission Date: 20110411
  Serious: Yes (Life-Threatening, Hospitalization)
  Sender: FDA-Public Use
  Company Number: B0684740A

PATIENT
  Sex: Male
  Weight: 71 kg

DRUGS (16)
  1. ALKERAN [Suspect]
     Indication: STEM CELL TRANSPLANT
     Dosage: 220MG PER DAY
     Route: 042
     Dates: start: 20100306, end: 20100306
  2. VEPESID [Suspect]
     Indication: STEM CELL TRANSPLANT
     Dosage: 850MG PER DAY
     Route: 042
     Dates: start: 20100303, end: 20100305
  3. ENDOXAN [Suspect]
     Indication: STEM CELL TRANSPLANT
     Dosage: 4260MG PER DAY
     Dates: start: 20100303, end: 20100304
  4. DEXAMETHASONE SODIUM PHOSPHATE [Suspect]
     Indication: STEM CELL TRANSPLANT
     Dosage: 40MG PER DAY
     Dates: start: 20100303, end: 20100306
  5. RITUXAN [Concomitant]
     Indication: STEM CELL TRANSPLANT
     Dosage: 700MG PER DAY
     Route: 042
     Dates: start: 20100302, end: 20100302
  6. NEUTROGIN [Concomitant]
     Route: 042
     Dates: start: 20100309, end: 20100321
  7. UROMITEXAN [Concomitant]
     Dosage: 5100MG PER DAY
     Route: 042
     Dates: start: 20100303, end: 20100304
  8. FUROSEMIDE [Concomitant]
     Dosage: 20MG PER DAY
     Route: 042
     Dates: start: 20100303, end: 20100308
  9. SAXIZON [Concomitant]
     Dosage: 200MG PER DAY
     Route: 042
     Dates: start: 20100308, end: 20100308
  10. SAXIZON [Concomitant]
     Route: 042
     Dates: start: 20100310
  11. PRIDOL [Concomitant]
     Dosage: 125MG PER DAY
     Route: 042
     Dates: start: 20100308, end: 20100308
  12. ITRIZOLE [Concomitant]
     Dosage: 20ML PER DAY
     Route: 048
     Dates: end: 20100609
  13. TETRAMIDE [Concomitant]
     Dosage: 10MG PER DAY
     Route: 048
     Dates: end: 20100609
  14. LENDORMIN [Concomitant]
     Dosage: .25MG PER DAY
     Route: 048
     Dates: end: 20100609
  15. CALONAL [Concomitant]
     Route: 048
     Dates: start: 20100309, end: 20100331
  16. BACTRIM [Concomitant]
     Route: 048
     Dates: start: 20100401, end: 20100609

REACTIONS (4)
  - DECREASED APPETITE [None]
  - HYPOKALAEMIA [None]
  - NAUSEA [None]
  - SEPSIS [None]
